FAERS Safety Report 17230853 (Version 2)
Quarter: 2020Q1

REPORT INFORMATION
  Report Type: Report from Study
  Country: US (occurrence: US)
  Receive Date: 20200103
  Receipt Date: 20200226
  Transmission Date: 20200409
  Serious: Yes (Hospitalization)
  Sender: FDA-Public Use
  Company Number: US-MYLANLABS-2019M1132920

PATIENT
  Age: 17 Year
  Sex: Male
  Weight: 68 kg

DRUGS (10)
  1. VINCRISTINE [Suspect]
     Active Substance: VINCRISTINE
     Indication: LYMPHOCYTIC LEUKAEMIA
     Dosage: 2 MILLIGRAM
     Route: 042
     Dates: start: 20191014
  2. MERCAPTOPURINE. [Suspect]
     Active Substance: MERCAPTOPURINE
     Dosage: 50 MILLIGRAM (MON, WED, FRI)/25 MILLIGRAM (SUN, TUE, THURS,SAT)
     Route: 048
     Dates: start: 20191216
  3. METHOTREXATE. [Suspect]
     Active Substance: METHOTREXATE
     Dosage: 37.5 MILLIGRAM
     Route: 037
     Dates: start: 20191216
  4. RUXOLITINIB [Suspect]
     Active Substance: RUXOLITINIB
     Dosage: 95 MILLIGRAM, QD(QD (14 DAYSON/OFF))
     Route: 048
     Dates: start: 20191216
  5. MERCAPTOPURINE. [Suspect]
     Active Substance: MERCAPTOPURINE
     Dosage: 50 MILLIGRAM (MON, WED, FRI)/25 MILLIGRAM (SUN, TUE, THURS,SAT)
     Route: 048
     Dates: start: 20191216
  6. METHOTREXATE. [Suspect]
     Active Substance: METHOTREXATE
     Indication: LYMPHOCYTIC LEUKAEMIA
     Dosage: 37.5 MILLIGRAM, QW
     Route: 048
     Dates: start: 20191021, end: 20191125
  7. METHOTREXATE. [Suspect]
     Active Substance: METHOTREXATE
     Dosage: 95 MILLIGRAM
     Route: 037
     Dates: start: 20191014
  8. MERCAPTOPURINE. [Suspect]
     Active Substance: MERCAPTOPURINE
     Indication: LYMPHOCYTIC LEUKAEMIA
     Dosage: 150MG/125MG, BID
     Route: 048
     Dates: start: 20191014, end: 20191125
  9. PREDNISONE. [Suspect]
     Active Substance: PREDNISONE
     Indication: LYMPHOCYTIC LEUKAEMIA
     Dosage: 40MG/35MG, BID (5 DAYS)
     Route: 048
     Dates: start: 20191014
  10. RUXOLITINIB [Suspect]
     Active Substance: RUXOLITINIB
     Indication: LYMPHOCYTIC LEUKAEMIA
     Dosage: QD(QD (14 DAYSON/OFF))
     Route: 048
     Dates: start: 20191014, end: 20191125

REACTIONS (2)
  - Pancreatitis [Recovered/Resolved]
  - Oesophagitis [Recovered/Resolved]

NARRATIVE: CASE EVENT DATE: 20191129
